FAERS Safety Report 25895175 (Version 1)
Quarter: 2025Q4

REPORT INFORMATION
  Report Type: Spontaneous
  Country: US (occurrence: None)
  Receive Date: 20251007
  Receipt Date: 20251007
  Transmission Date: 20260117
  Serious: Yes (Hospitalization)
  Sender: FDA-CTU
  Company Number: None

PATIENT
  Age: 53 Year
  Sex: Male

DRUGS (11)
  1. LENALIDOMIDE [Suspect]
     Active Substance: LENALIDOMIDE
     Indication: Amyloidosis
     Dosage: OTHER FREQUENCY : DAYS 1-21 OF A 28 DAY CYCLE;?
     Route: 048
     Dates: start: 20221210
  2. ACYCLOVIR [Concomitant]
     Active Substance: ACYCLOVIR
  3. ADAPALENE GEL 0.1% [Concomitant]
     Active Substance: ADAPALENE
  4. ALBUTEROL SULFATE [Concomitant]
     Active Substance: ALBUTEROL SULFATE
  5. AMLACTIN LOT [Concomitant]
  6. ASPIRIN LOW EC [Concomitant]
  7. ATORVASTATIN [Concomitant]
     Active Substance: ATORVASTATIN
  8. BRIMONIDINE SOL 0.1% [Concomitant]
  9. CLINDAMYCIN GEL 1% [Concomitant]
  10. CLINDAMYCIN [Concomitant]
     Active Substance: CLINDAMYCIN
  11. DEBROX SOL 6.5% [Concomitant]

REACTIONS (2)
  - Limb operation [None]
  - Therapy interrupted [None]

NARRATIVE: CASE EVENT DATE: 20250926
